FAERS Safety Report 10037395 (Version 1)
Quarter: 2014Q1

REPORT INFORMATION
  Report Type: Spontaneous
  Country: US (occurrence: None)
  Receive Date: 20140325
  Receipt Date: 20140325
  Transmission Date: 20141002
  Serious: Yes (Other)
  Sender: FDA-Public Use
  Company Number: None

PATIENT
  Age: 75 Year
  Sex: Male
  Weight: 77.11 kg

DRUGS (3)
  1. ATENOLOL [Suspect]
  2. SIMVASTATIN [Concomitant]
  3. ANTENOLOL [Concomitant]

REACTIONS (1)
  - Blood pressure increased [None]
